FAERS Safety Report 15490433 (Version 1)
Quarter: 2018Q4

REPORT INFORMATION
  Report Type: Spontaneous
  Country: DK (occurrence: DK)
  Receive Date: 20181011
  Receipt Date: 20181011
  Transmission Date: 20190205
  Serious: Yes (Death, Life-Threatening)
  Sender: FDA-Public Use
  Company Number: DK-PURDUE-GBR-2018-0060150

PATIENT
  Age: 81 Year
  Sex: Male

DRUGS (2)
  1. CONTALGIN [Suspect]
     Active Substance: MORPHINE SULFATE
     Indication: PAIN
     Dosage: 30 MG, DAILY (DOSIS: TIL NATTEN. STYRKE: 30 MG.)
     Route: 048
     Dates: start: 20180529
  2. LEVEMIR [Suspect]
     Active Substance: INSULIN DETEMIR
     Indication: TYPE 2 DIABETES MELLITUS
     Dosage: 33 IU, DAILY (STYRKE: 100 E/ML FLEXPEN.)
     Route: 058
     Dates: start: 20130307

REACTIONS (2)
  - Hypoglycaemia [Fatal]
  - Coma [Fatal]

NARRATIVE: CASE EVENT DATE: 20180607
